FAERS Safety Report 8376993-7 (Version None)
Quarter: 2012Q2

REPORT INFORMATION
  Report Type: 
  Country: None (occurrence: None)
  Receive Date: 20120522
  Receipt Date: 20120515
  Transmission Date: 20120825
  Serious: Yes (Hospitalization)
  Sender: FDA-Public Use
  Company Number: US-B.I. PHARMACEUTICALS,INC./RIDGEFIELD-2012-BP-10859BP

PATIENT
  Age: 81 Year
  Sex: Male

DRUGS (13)
  1. COREG [Concomitant]
     Indication: ATRIAL FIBRILLATION
  2. SAW PALMETTO [Concomitant]
  3. VITAMIN B COMPLEX CAP [Concomitant]
     Indication: SUPPLEMENTATION THERAPY
  4. PRADAXA [Suspect]
     Dosage: 150 MG
     Route: 048
     Dates: start: 20120215, end: 20120304
  5. GARLIC [Concomitant]
  6. LASIX [Concomitant]
     Indication: CARDIAC FAILURE CONGESTIVE
  7. ASCORBIC ACID [Concomitant]
     Indication: SUPPLEMENTATION THERAPY
  8. PRADAXA [Suspect]
     Indication: ATRIAL FIBRILLATION
     Dosage: 300 MG
     Route: 048
     Dates: start: 20120109, end: 20120214
  9. MULTI-VITAMIN [Concomitant]
     Indication: SUPPLEMENTATION THERAPY
  10. COQ10 [Concomitant]
  11. AMIODARONE HCL [Concomitant]
     Indication: ATRIAL FIBRILLATION
  12. ZOCOR [Concomitant]
     Indication: BLOOD CHOLESTEROL INCREASED
  13. TART CHERRY EXTRACT [Concomitant]

REACTIONS (3)
  - GASTROINTESTINAL HAEMORRHAGE [None]
  - ASTHENIA [None]
  - MELAENA [None]
